FAERS Safety Report 23784256 (Version 1)
Quarter: 2024Q2

REPORT INFORMATION
  Report Type: Spontaneous
  Country: US (occurrence: None)
  Receive Date: 20240425
  Receipt Date: 20240425
  Transmission Date: 20240716
  Serious: Yes (Hospitalization, Other)
  Sender: FDA-Public Use
  Company Number: None

PATIENT
  Age: 46 Year
  Sex: Female
  Weight: 58.5 kg

DRUGS (2)
  1. BOTOX [Suspect]
     Active Substance: ONABOTULINUMTOXINA
     Indication: Skin cosmetic procedure
     Route: 058
     Dates: start: 20231116, end: 20231116
  2. albuiterol [Concomitant]

REACTIONS (10)
  - Ocular hyperaemia [None]
  - Eye pruritus [None]
  - Photophobia [None]
  - Vision blurred [None]
  - Malaise [None]
  - Dysphagia [None]
  - Muscle spasms [None]
  - Headache [None]
  - Oropharyngeal spasm [None]
  - Weight decreased [None]

NARRATIVE: CASE EVENT DATE: 20240101
